FAERS Safety Report 19477663 (Version 1)
Quarter: 2021Q2

REPORT INFORMATION
  Report Type: Spontaneous
  Country: JP (occurrence: JP)
  Receive Date: 20210630
  Receipt Date: 20210630
  Transmission Date: 20210717
  Serious: Yes (Other)
  Sender: FDA-Public Use
  Company Number: JP-NOVOPROD-824869

PATIENT
  Age: 7 Year
  Sex: Female

DRUGS (1)
  1. NORDITROPIN [Suspect]
     Active Substance: SOMATROPIN
     Indication: TURNER^S SYNDROME
     Dosage: UNK
     Route: 065

REACTIONS (4)
  - Aortic stenosis [Unknown]
  - Psychomotor hyperactivity [Unknown]
  - Coarctation of the aorta [Unknown]
  - Renal fusion anomaly [Unknown]
